FAERS Safety Report 11536053 (Version 1)
Quarter: 2015Q3

REPORT INFORMATION
  Report Type: Spontaneous
  Country: US (occurrence: US)
  Receive Date: 20150903
  Receipt Date: 20150903
  Transmission Date: 20151125
  Serious: Yes (Hospitalization)
  Sender: FDA-Public Use
  Company Number: US-ELI_LILLY_AND_COMPANY-US201105008085

PATIENT
  Age: 35 Year
  Sex: Male

DRUGS (4)
  1. HUMALOG [Suspect]
     Active Substance: INSULIN LISPRO
     Dosage: UNK, PRN
     Route: 058
     Dates: start: 2004
  2. HUMALOG [Suspect]
     Active Substance: INSULIN LISPRO
     Dosage: UNK, PRN
     Route: 058
     Dates: start: 2004
  3. HUMALOG [Suspect]
     Active Substance: INSULIN LISPRO
     Dosage: UNK, PRN
     Route: 058
     Dates: start: 2004
  4. HUMALOG [Suspect]
     Active Substance: INSULIN LISPRO
     Indication: TYPE 1 DIABETES MELLITUS
     Dosage: UNK, PRN
     Route: 058
     Dates: start: 2004

REACTIONS (11)
  - Hyperglycaemia [Unknown]
  - White blood cell count increased [Unknown]
  - Blood glucose increased [Unknown]
  - Feeling of body temperature change [Unknown]
  - Pallor [Unknown]
  - Dehydration [Unknown]
  - Drug ineffective [Unknown]
  - Abdominal pain upper [Unknown]
  - Somnolence [Unknown]
  - Pallor [Unknown]
  - Malaise [Unknown]

NARRATIVE: CASE EVENT DATE: 201104
